FAERS Safety Report 18443549 (Version 1)
Quarter: 2020Q4

REPORT INFORMATION
  Report Type: Spontaneous
  Country: US (occurrence: US)
  Receive Date: 20201029
  Receipt Date: 20201029
  Transmission Date: 20210114
  Serious: Yes (Other)
  Sender: FDA-Public Use
  Company Number: US-ELI_LILLY_AND_COMPANY-US202006003866

PATIENT
  Sex: Female

DRUGS (1)
  1. EMGALITY [Suspect]
     Active Substance: GALCANEZUMAB-GNLM
     Indication: MIGRAINE
     Dosage: 1 DOSAGE FORM, UNKNOWN
     Route: 065
     Dates: start: 201906

REACTIONS (7)
  - Abdominal distension [Unknown]
  - Gastrointestinal disorder [Unknown]
  - Back pain [Unknown]
  - Fatigue [Unknown]
  - Weight increased [Unknown]
  - Alopecia [Unknown]
  - Muscle spasms [Unknown]
